FAERS Safety Report 6412982-7 (Version None)
Quarter: 2009Q4

REPORT INFORMATION
  Report Type: 
  Country: None (occurrence: None)
  Receive Date: 20091023
  Receipt Date: 20091016
  Transmission Date: 20100525
  Serious: Yes (Other)
  Sender: FDA-Public Use
  Company Number: PHHY2009JP20737

PATIENT
  Sex: Male
  Weight: 52 kg

DRUGS (13)
  1. COMTAN CMT+TAB [Suspect]
     Indication: DRUG EFFECT DECREASED
     Dosage: 400 MG DAILY
     Route: 048
     Dates: start: 20090324, end: 20090330
  2. COMTAN CMT+TAB [Suspect]
     Indication: PARKINSON'S DISEASE
     Dosage: 300 MG DAILY
     Route: 048
     Dates: start: 20090331, end: 20090501
  3. COMTAN CMT+TAB [Suspect]
     Dosage: 200 MG DAILY
     Route: 048
     Dates: start: 20090502, end: 20090509
  4. CARBIDOPA AND LEVODOPA [Concomitant]
     Indication: PARKINSON'S DISEASE
     Dosage: 400 MG, UNK
     Route: 048
     Dates: start: 20090317
  5. CARBIDOPA AND LEVODOPA [Concomitant]
     Dosage: 300 MG
     Route: 048
  6. CARBIDOPA AND LEVODOPA [Concomitant]
     Dosage: 400 MG
     Route: 048
  7. SELEGILINE HYDROCHLORIDE [Concomitant]
     Indication: PARKINSON'S DISEASE
     Dosage: 5 MG, UNK
     Route: 048
     Dates: start: 20090317, end: 20090402
  8. PERMAX [Concomitant]
     Indication: PARKINSON'S DISEASE
     Dosage: 1000 MG, UNK
     Route: 048
     Dates: start: 20090317
  9. PERMAX [Concomitant]
     Dosage: 1000 MG, UNK
     Route: 048
     Dates: end: 20090422
  10. PERMAX [Concomitant]
     Dosage: 750 MCG
     Route: 048
  11. SYMMETREL [Concomitant]
     Indication: PARKINSON'S DISEASE
     Dosage: 150 MG, UNK
     Route: 048
     Dates: start: 20090317, end: 20090324
  12. NORVASC [Concomitant]
     Indication: HYPERTENSION
     Dosage: 5 MG, UNK
     Route: 048
     Dates: start: 20090324
  13. LENDORMIN [Concomitant]
     Indication: HYPERTENSION
     Dosage: 0.25 MG, UNK
     Route: 048
     Dates: start: 20090423

REACTIONS (9)
  - BLOOD ALKALINE PHOSPHATASE INCREASED [None]
  - BLOOD CREATININE INCREASED [None]
  - DYSKINESIA [None]
  - HALLUCINATION [None]
  - HYPOKINESIA [None]
  - LIBIDO INCREASED [None]
  - RESTLESSNESS [None]
  - SOMNOLENCE [None]
  - SPEECH DISORDER [None]
